FAERS Safety Report 11642620 (Version 1)
Quarter: 2015Q4

REPORT INFORMATION
  Report Type: Spontaneous
  Country: GB (occurrence: GB)
  Receive Date: 20151020
  Receipt Date: 20151020
  Transmission Date: 20160304
  Serious: Yes (Disabling, Other)
  Sender: FDA-Public Use
  Company Number: GB-JNJFOC-20151005293

PATIENT
  Age: 39 Year
  Sex: Female
  Weight: 68.94 kg

DRUGS (3)
  1. NEUTROGENA TGEL THERAPEUTIC [Suspect]
     Active Substance: COAL TAR
     Indication: DANDRUFF
     Dosage: 2 50P SIZED BLOBS
     Route: 065
  2. SALBUTAMOL [Concomitant]
     Active Substance: ALBUTEROL
     Indication: PRODUCT USED FOR UNKNOWN INDICATION
     Route: 065
  3. MICROGYNON [Concomitant]
     Active Substance: ETHINYL ESTRADIOL\LEVONORGESTREL ACETATE
     Indication: PRODUCT USED FOR UNKNOWN INDICATION
     Route: 065

REACTIONS (6)
  - Dermatitis contact [Not Recovered/Not Resolved]
  - Psoriasis [Unknown]
  - Skin burning sensation [Not Recovered/Not Resolved]
  - Pruritus [Not Recovered/Not Resolved]
  - Dermatitis infected [Unknown]
  - Wound secretion [Unknown]

NARRATIVE: CASE EVENT DATE: 20150906
